FAERS Safety Report 21357691 (Version 2)
Quarter: 2022Q4

REPORT INFORMATION
  Report Type: Report from Study
  Country: CA (occurrence: CA)
  Receive Date: 20220921
  Receipt Date: 20221213
  Transmission Date: 20230113
  Serious: Yes (Other)
  Sender: FDA-Public Use
  Company Number: CA-NOVARTISPH-PHHY2018CA078524

PATIENT
  Age: 61 Year
  Sex: Male
  Weight: 124 kg

DRUGS (7)
  1. SECUKINUMAB [Suspect]
     Active Substance: SECUKINUMAB
     Indication: Psoriasis
     Dosage: 300 MG
     Route: 058
     Dates: start: 20180501, end: 20180529
  2. SECUKINUMAB [Suspect]
     Active Substance: SECUKINUMAB
     Dosage: 300 MG
     Route: 058
     Dates: start: 20180626
  3. HYDROCORTISONE VALERATE [Concomitant]
     Active Substance: HYDROCORTISONE VALERATE
     Indication: Product used for unknown indication
     Dosage: UNK
     Route: 065
     Dates: start: 20180116, end: 20180820
  4. BETAMETHASONE\CALCIPOTRIENE [Concomitant]
     Active Substance: BETAMETHASONE\CALCIPOTRIENE
     Indication: Product used for unknown indication
     Dosage: UNK
     Route: 065
     Dates: start: 2014, end: 20180820
  5. LYDERM [Concomitant]
     Indication: Product used for unknown indication
     Dosage: UNK
     Route: 065
     Dates: start: 2014, end: 20180820
  6. CLOBETASOL [Concomitant]
     Active Substance: CLOBETASOL
     Indication: Product used for unknown indication
     Dosage: UNK
     Route: 065
     Dates: start: 201603, end: 20180820
  7. CLOBETASOL [Concomitant]
     Active Substance: CLOBETASOL
     Dosage: UNK
     Route: 065
     Dates: start: 20191022

REACTIONS (23)
  - Deafness bilateral [Not Recovered/Not Resolved]
  - Otitis externa [Recovered/Resolved]
  - Pedal pulse decreased [Not Recovered/Not Resolved]
  - Depression [Recovered/Resolved]
  - Otitis externa [Recovered/Resolved]
  - Ear infection [Recovered/Resolved]
  - Tinea pedis [Unknown]
  - Actinic keratosis [Recovered/Resolved]
  - Naevus haemorrhage [Recovered/Resolved]
  - Tongue geographic [Recovered/Resolved]
  - Oral candidiasis [Recovered/Resolved]
  - COVID-19 [Recovered/Resolved]
  - Pyrexia [Unknown]
  - Fatigue [Unknown]
  - Myalgia [Unknown]
  - Anosmia [Unknown]
  - Nausea [Unknown]
  - Vomiting [Unknown]
  - Ear infection [Not Recovered/Not Resolved]
  - Fungal foot infection [Recovered/Resolved]
  - Vascular insufficiency [Not Recovered/Not Resolved]
  - Anxiety [Recovered/Resolved]
  - Depression [Not Recovered/Not Resolved]

NARRATIVE: CASE EVENT DATE: 20180623
